FAERS Safety Report 5029790-4 (Version None)
Quarter: 2006Q2

REPORT INFORMATION
  Report Type: 
  Country: None (occurrence: None)
  Receive Date: 20060620
  Receipt Date: 20060313
  Transmission Date: 20061013
  Serious: Yes (Hospitalization)
  Sender: FDA-Public Use
  Company Number: US-ROCHE-440145

PATIENT
  Age: 44 Year
  Sex: Male
  Weight: 74.8 kg

DRUGS (1)
  1. ACCUTANE [Suspect]
     Indication: ACNE
     Route: 048
     Dates: start: 19880115, end: 19880615

REACTIONS (28)
  - ALCOHOL USE [None]
  - ANAEMIA [None]
  - APHTHOUS STOMATITIS [None]
  - BACK PAIN [None]
  - BLOOD IRON DECREASED [None]
  - BRACHIAL PLEXUS INJURY [None]
  - COLITIS ULCERATIVE [None]
  - CONJUNCTIVAL HYPERAEMIA [None]
  - CROHN'S DISEASE [None]
  - DEEP VEIN THROMBOSIS [None]
  - DRUG HYPERSENSITIVITY [None]
  - FRACTURE [None]
  - FUNGAL SKIN INFECTION [None]
  - HERPES ZOSTER [None]
  - HYPOAESTHESIA [None]
  - INFLAMMATORY BOWEL DISEASE [None]
  - IRON DEFICIENCY ANAEMIA [None]
  - LABYRINTHITIS [None]
  - MELANOCYTIC NAEVUS [None]
  - NECK INJURY [None]
  - NEPHROLITHIASIS [None]
  - PANCREATITIS [None]
  - PARAESTHESIA [None]
  - POST HERPETIC NEURALGIA [None]
  - PROCEDURAL COMPLICATION [None]
  - PULMONARY EMBOLISM [None]
  - PULMONARY THROMBOSIS [None]
  - SEBORRHOEIC KERATOSIS [None]
